FAERS Safety Report 25151769 (Version 4)
Quarter: 2025Q4

REPORT INFORMATION
  Report Type: Report from Study
  Country: JP (occurrence: JP)
  Receive Date: 20250402
  Receipt Date: 20251029
  Transmission Date: 20260117
  Serious: Yes (Hospitalization, Other)
  Sender: MERCK SHARP & DOHME LLC
  Company Number: JP-MSD-2006JPN000985J

PATIENT
  Age: 59 Year
  Sex: Male

DRUGS (19)
  1. ISENTRESS [Suspect]
     Active Substance: RALTEGRAVIR POTASSIUM
     Indication: HIV infection
     Dosage: STRENGTH: 400 MG
     Route: 048
     Dates: start: 20170223, end: 20220927
  2. DESCOVY [Suspect]
     Active Substance: EMTRICITABINE\TENOFOVIR ALAFENAMIDE FUMARATE
     Indication: HIV infection
     Route: 048
     Dates: start: 20190223, end: 20240202
  3. PREZISTA [Suspect]
     Active Substance: DARUNAVIR ETHANOLATE
     Indication: HIV infection
     Route: 065
     Dates: start: 20190223, end: 20240202
  4. NORVIR [Suspect]
     Active Substance: RITONAVIR
     Indication: HIV infection
     Route: 065
     Dates: start: 20190223, end: 20240202
  5. PIFELTRO [Suspect]
     Active Substance: DORAVIRINE
     Indication: HIV infection
     Dosage: STRENGTH: 100MG
     Route: 048
     Dates: start: 20220928
  6. INTELENCE [Suspect]
     Active Substance: ETRAVIRINE
     Indication: HIV infection
     Dosage: DOSE DESCRIPTION : 400 MILLIGRAM/DAY
     Route: 065
     Dates: start: 20170223, end: 20220927
  7. ASTAT [LANOCONAZOLE] [Concomitant]
     Dosage: DOSE DESCRIPTION : UNK?FORMULATION: LIQUID
     Route: 051
     Dates: start: 20170223
  8. ADVATE [Concomitant]
     Active Substance: ANTIHEMOPHILIC FACTOR, HUMAN RECOMBINANT
     Dosage: DOSE DESCRIPTION : UNK
     Route: 065
     Dates: start: 20170223, end: 20181127
  9. RABEPRAZOLE SODIUM [Concomitant]
     Active Substance: RABEPRAZOLE SODIUM
     Route: 048
     Dates: start: 20170223
  10. CARBOCYSTEINE [Concomitant]
     Active Substance: CARBOCYSTEINE
     Dosage: DOSE DESCRIPTION : UNK
     Route: 065
     Dates: start: 20170223, end: 20181225
  11. CARBOCYSTEINE [Concomitant]
     Active Substance: CARBOCYSTEINE
     Dosage: DOSE DESCRIPTION : UNK
     Route: 065
     Dates: start: 20190227
  12. LIVACT [ISOLEUCINE;LEUCINE;VALINE] [Concomitant]
     Indication: Liver disorder
     Route: 048
     Dates: start: 20170223
  13. VONOPRAZAN FUMARATE [Concomitant]
     Active Substance: VONOPRAZAN FUMARATE
     Indication: Disease complication
     Dates: start: 202402
  14. BIKTARVY [Suspect]
     Active Substance: BICTEGRAVIR SODIUM\EMTRICITABINE\TENOFOVIR ALAFENAMIDE FUMARATE
     Indication: HIV infection
     Route: 048
     Dates: start: 20240223
  15. LENACAPAVIR [Suspect]
     Active Substance: LENACAPAVIR
     Indication: HIV infection
     Route: 048
     Dates: start: 20240119, end: 20240119
  16. LENACAPAVIR [Suspect]
     Active Substance: LENACAPAVIR
     Indication: HIV infection
     Route: 048
     Dates: start: 20240120, end: 20240120
  17. LENACAPAVIR [Suspect]
     Active Substance: LENACAPAVIR
     Indication: HIV infection
     Route: 048
     Dates: start: 20240126, end: 20240126
  18. LENACAPAVIR [Suspect]
     Active Substance: LENACAPAVIR
     Indication: HIV infection
     Dosage: STRENGTH: 463.5 MG
     Route: 058
     Dates: start: 20240202, end: 20240202
  19. LENACAPAVIR [Suspect]
     Active Substance: LENACAPAVIR
     Indication: HIV infection
     Route: 058
     Dates: start: 20240719

REACTIONS (8)
  - Hepatocellular carcinoma [Recovered/Resolved]
  - Liver transplant [Not Recovered/Not Resolved]
  - Hypertonic bladder [Not Recovered/Not Resolved]
  - Adverse event [Unknown]
  - Drug resistance [Not Recovered/Not Resolved]
  - Osteoporosis [Not Recovered/Not Resolved]
  - Type 2 diabetes mellitus [Not Recovered/Not Resolved]
  - Drug ineffective [Unknown]

NARRATIVE: CASE EVENT DATE: 20170622
